FAERS Safety Report 21967877 (Version 1)
Quarter: 2023Q1

REPORT INFORMATION
  Report Type: Spontaneous
  Country: US (occurrence: US)
  Receive Date: 20230208
  Receipt Date: 20230208
  Transmission Date: 20230418
  Serious: Yes (Other)
  Sender: FDA-Public Use
  Company Number: US-BAXTER-2023BAX012186

PATIENT
  Sex: Male

DRUGS (40)
  1. DOXORUBICIN [Suspect]
     Active Substance: DOXORUBICIN
     Indication: Plasma cell myeloma refractory
     Dosage: UNK
     Route: 065
  2. DOXORUBICIN [Suspect]
     Active Substance: DOXORUBICIN
     Dosage: VD-PACE THERAPY, AS EIGHT LINES
     Route: 065
     Dates: start: 20220207
  3. DOXORUBICIN [Suspect]
     Active Substance: DOXORUBICIN
     Dosage: START DATE NOV2022, VD-PACE THERAPY
     Route: 065
  4. CYCLOPHOSPHAMIDE [Suspect]
     Active Substance: CYCLOPHOSPHAMIDE
     Indication: Plasma cell myeloma refractory
     Dosage: UNK
     Route: 065
  5. CYCLOPHOSPHAMIDE [Suspect]
     Active Substance: CYCLOPHOSPHAMIDE
     Dosage: VD-PACE THERAPY, AS EIGHT LINES
     Route: 065
     Dates: start: 20220207
  6. CYCLOPHOSPHAMIDE [Suspect]
     Active Substance: CYCLOPHOSPHAMIDE
     Dosage: START DATE NOV2022, VD-PACE THERAPY
     Route: 065
  7. VELCADE [Suspect]
     Active Substance: BORTEZOMIB
     Indication: Plasma cell myeloma refractory
     Dosage: UNK
     Route: 065
  8. VELCADE [Suspect]
     Active Substance: BORTEZOMIB
     Dosage: VD-PACE THERAPY, AS EIGHT LINES
     Route: 065
     Dates: start: 20220207
  9. VELCADE [Suspect]
     Active Substance: BORTEZOMIB
     Dosage: START DATE NOV2022, VD-PACE THERAPY
     Route: 065
  10. DEXAMETHASONE [Suspect]
     Active Substance: DEXAMETHASONE
     Indication: Plasma cell myeloma refractory
     Route: 065
  11. DEXAMETHASONE [Suspect]
     Active Substance: DEXAMETHASONE
     Dosage: AS SEVENTH LINE
     Route: 065
  12. DEXAMETHASONE [Suspect]
     Active Substance: DEXAMETHASONE
     Dosage: VD-PACE THERAPY, AS EIGHT LINES
     Route: 065
     Dates: start: 20220207
  13. DEXAMETHASONE [Suspect]
     Active Substance: DEXAMETHASONE
     Dosage: START DATE NOV2022, VD-PACE THERAPY
     Route: 065
  14. DARATUMUMAB [Suspect]
     Active Substance: DARATUMUMAB
     Indication: Plasma cell myeloma refractory
     Route: 065
  15. DARATUMUMAB [Suspect]
     Active Substance: DARATUMUMAB
     Dosage: AS SEVENTH LINE
     Route: 065
  16. ETOPOSIDE [Suspect]
     Active Substance: ETOPOSIDE
     Indication: Plasma cell myeloma refractory
     Dosage: UNK
     Route: 065
  17. ETOPOSIDE [Suspect]
     Active Substance: ETOPOSIDE
     Dosage: VD-PACE THERAPY, AS EIGHT LINES
     Route: 065
     Dates: start: 20220207
  18. ETOPOSIDE [Suspect]
     Active Substance: ETOPOSIDE
     Dosage: START DATE NOV2022, VD-PACE THERAPY
     Route: 065
  19. CISPLATIN [Suspect]
     Active Substance: CISPLATIN
     Indication: Plasma cell myeloma refractory
     Dosage: UNK
     Route: 065
  20. CISPLATIN [Suspect]
     Active Substance: CISPLATIN
     Dosage: VD-PACE THERAPY, AS EIGHT LINES
     Route: 065
     Dates: start: 20220207
  21. CISPLATIN [Suspect]
     Active Substance: CISPLATIN
     Dosage: START DATE- NOV-2022, VD-PACE THERAPY
     Route: 065
  22. POMALIDOMIDE [Suspect]
     Active Substance: POMALIDOMIDE
     Dosage: AS SEVENTH LINE
     Route: 065
  23. KYPROLIS [Suspect]
     Active Substance: CARFILZOMIB
     Dosage: AS SEVENTH LINE
     Route: 065
  24. ABECMA [Suspect]
     Active Substance: IDECABTAGENE VICLEUCEL
     Dosage: AS A NIGHT LINE
     Route: 065
     Dates: start: 20220520
  25. TECLISTAMAB [Suspect]
     Active Substance: TECLISTAMAB
     Dosage: START DATE  DEC2022, AS A ELEVENTH LINE
     Route: 065
  26. ZOVIRAX [Concomitant]
     Active Substance: ACYCLOVIR
     Indication: Infection prophylaxis
     Dosage: 800 MG, BID
     Route: 048
  27. NORVASC [Concomitant]
     Active Substance: AMLODIPINE BESYLATE
     Dosage: UNK, QD
     Route: 048
  28. TUMS [Concomitant]
     Active Substance: CALCIUM CARBONATE
     Dosage: UNK, QD
     Route: 048
  29. PEPCID [Concomitant]
     Active Substance: FAMOTIDINE
     Dosage: 40 MG, BID
     Route: 048
  30. LASIX [Concomitant]
     Active Substance: FUROSEMIDE
     Dosage: 40 MG, QD
     Route: 048
  31. CORTEF [Concomitant]
     Active Substance: HYDROCORTISONE
     Dosage: 15 MG
     Route: 048
  32. CORTEF [Concomitant]
     Active Substance: HYDROCORTISONE
     Dosage: 10 MG
     Route: 048
  33. ENULOSE [Concomitant]
     Active Substance: LACTULOSE
     Dosage: 30 ML
     Route: 048
  34. LEVAQUIN [Concomitant]
     Active Substance: LEVOFLOXACIN
     Dosage: 750 MG, QD
     Route: 048
  35. TOPROL XL [Concomitant]
     Active Substance: METOPROLOL SUCCINATE
     Dosage: 25 MG, QD
     Route: 048
  36. MS CONTIN [Concomitant]
     Active Substance: MORPHINE SULFATE
     Dosage: 15 MG, Q12H
     Route: 048
  37. ZOFRAN [Concomitant]
     Active Substance: ONDANSETRON HYDROCHLORIDE
     Dosage: 8 MG, Q8HR
     Route: 048
  38. K-DUR [Concomitant]
     Active Substance: POTASSIUM CHLORIDE
     Dosage: 10 MILLIEQUIVALENT
     Route: 048
  39. SENOKOT-S [Concomitant]
     Active Substance: DOCUSATE SODIUM\SENNOSIDES
     Dosage: 8.6/50 MG, BID
     Route: 048
  40. BACTRIM DS [Concomitant]
     Active Substance: SULFAMETHOXAZOLE\TRIMETHOPRIM
     Dosage: 160/800 MG, 2/WEEK
     Route: 048

REACTIONS (4)
  - Plasma cell myeloma [Unknown]
  - Disease progression [Unknown]
  - Neuropathy peripheral [Unknown]
  - Therapy partial responder [Unknown]
